FAERS Safety Report 8348202-6 (Version None)
Quarter: 2012Q2

REPORT INFORMATION
  Report Type: 
  Country: None (occurrence: None)
  Receive Date: 20120509
  Receipt Date: 20120426
  Transmission Date: 20120825
  Serious: Yes (Disabling, Other)
  Sender: FDA-Public Use
  Company Number: GB-MYLANLABS-2012S1008605

PATIENT
  Age: 73 Year
  Sex: Female
  Weight: 74 kg

DRUGS (6)
  1. NOVOMIX [Concomitant]
     Indication: DIABETES MELLITUS
     Dates: start: 20060413
  2. PREMARIN [Concomitant]
     Indication: HORMONE REPLACEMENT THERAPY
     Dates: start: 20070511
  3. RAMIPRIL [Concomitant]
     Indication: DIABETES MELLITUS
     Dates: start: 20050630
  4. BENDROFLUMETHIAZIDE [Concomitant]
     Indication: BLOOD PRESSURE
     Route: 048
     Dates: start: 20040607
  5. SIMVASTATIN [Concomitant]
     Indication: DIABETES MELLITUS
     Route: 048
     Dates: start: 20070219
  6. DONEPEZIL HCL [Suspect]
     Indication: DEMENTIA
     Route: 048
     Dates: start: 20111028

REACTIONS (1)
  - HYPERSEXUALITY [None]
